FAERS Safety Report 23449022 (Version 1)
Quarter: 2024Q1

REPORT INFORMATION
  Report Type: Spontaneous
  Country: US (occurrence: US)
  Receive Date: 20240128
  Receipt Date: 20240128
  Transmission Date: 20240410
  Serious: Yes (Life-Threatening, Hospitalization)
  Sender: FDA-Public Use
  Company Number: US-ENDO PHARMACEUTICALS INC-2024-000335

PATIENT
  Age: 49 Year
  Sex: Female
  Weight: 104 kg

DRUGS (3)
  1. KETALAR [Suspect]
     Active Substance: KETAMINE HYDROCHLORIDE
     Indication: Sedation
     Dosage: 30 MILLIGRAM, UNKNOWN
     Route: 042
  2. KETALAR [Suspect]
     Active Substance: KETAMINE HYDROCHLORIDE
     Dosage: 70 MILLIGRAM, UNKNOWN (TITRATED TO DISSOCIATION AFTER RECEIVING KETAMINE 30MG)
     Route: 042
  3. DIAZEPAM [Concomitant]
     Active Substance: DIAZEPAM
     Indication: Sedation
     Dosage: 2.5 MILLIGRAM, UNKNOWN
     Route: 042

REACTIONS (4)
  - Stress cardiomyopathy [Recovering/Resolving]
  - Pulmonary oedema [Recovering/Resolving]
  - Delirium [Recovered/Resolved]
  - Apnoea [Recovered/Resolved]
